FAERS Safety Report 22400135 (Version 1)
Quarter: 2023Q2

REPORT INFORMATION
  Report Type: Spontaneous
  Country: US (occurrence: US)
  Receive Date: 20230602
  Receipt Date: 20230602
  Transmission Date: 20230721
  Serious: Yes (Other)
  Sender: FDA-Public Use
  Company Number: US-AMERICAN REGENT INC-2023001261

PATIENT
  Age: 27 Year
  Sex: Male

DRUGS (2)
  1. ACETYLCYSTEINE [Suspect]
     Active Substance: ACETYLCYSTEINE
     Indication: Intentional overdose
     Dosage: UNK UNKNOWN
     Route: 065
  2. ACETYLCYSTEINE [Suspect]
     Active Substance: ACETYLCYSTEINE
     Dosage: 14 MG/KG/HR (HIGH-DOSE NAC INFUSION)
     Route: 042

REACTIONS (3)
  - Drug ineffective [Not Recovered/Not Resolved]
  - Hepatotoxicity [Not Recovered/Not Resolved]
  - Incorrect route of product administration [Unknown]
